FAERS Safety Report 24319147 (Version 7)
Quarter: 2025Q1

REPORT INFORMATION
  Report Type: Report from Study
  Country: US (occurrence: US)
  Receive Date: 20240913
  Receipt Date: 20250307
  Transmission Date: 20250408
  Serious: No
  Sender: SUNOVION
  Company Number: US-SUMITOMO PHARMA SWITZERLAND GMBH-2024SPA001725

PATIENT

DRUGS (1)
  1. ORGOVYX [Suspect]
     Active Substance: RELUGOLIX
     Indication: Prostate cancer
     Dosage: 120 MG, QD
     Route: 048
     Dates: start: 20240822

REACTIONS (9)
  - Prostatomegaly [Unknown]
  - Pollakiuria [Unknown]
  - Sinus congestion [Unknown]
  - Pain [Unknown]
  - Faeces hard [Unknown]
  - Nasal congestion [Unknown]
  - Dizziness [Unknown]
  - Fatigue [Unknown]
  - Incorrect dose administered [Unknown]
